FAERS Safety Report 13491864 (Version 1)
Quarter: 2017Q2

REPORT INFORMATION
  Report Type: Spontaneous
  Country: FR (occurrence: FR)
  Receive Date: 20170427
  Receipt Date: 20170427
  Transmission Date: 20170830
  Serious: Yes (Hospitalization, Congenital Anomaly, Other)
  Sender: FDA-Public Use
  Company Number: FR-ASTRAZENECA-2017SE42091

PATIENT
  Age: 0 Day
  Sex: Female
  Weight: 3.2 kg

DRUGS (4)
  1. DEPAKOTE [Suspect]
     Active Substance: DIVALPROEX SODIUM
     Indication: BIPOLAR DISORDER
     Route: 064
     Dates: start: 20140821, end: 20150424
  2. VALIUM [Suspect]
     Active Substance: DIAZEPAM
     Indication: BIPOLAR DISORDER
     Route: 064
     Dates: start: 20140821, end: 201503
  3. XEROQUEL [Suspect]
     Active Substance: QUETIAPINE FUMARATE
     Indication: BIPOLAR DISORDER
     Route: 064
     Dates: start: 20140821, end: 20150424
  4. TERCIAN [Suspect]
     Active Substance: CYAMEMAZINE
     Indication: BIPOLAR DISORDER
     Route: 064
     Dates: start: 20140821, end: 20150424

REACTIONS (10)
  - Dysmorphism [Not Recovered/Not Resolved]
  - Atrial septal defect [Recovering/Resolving]
  - Hypoglycaemia [Recovered/Resolved]
  - Craniofacial dysostosis [Unknown]
  - Microstomia [Not Recovered/Not Resolved]
  - Oesophagitis [Unknown]
  - Hypotonia [Recovered/Resolved]
  - Respiratory distress [Unknown]
  - Foetal macrosomia [Recovered/Resolved]
  - Hypertrophic cardiomyopathy [Unknown]

NARRATIVE: CASE EVENT DATE: 20150424
